FAERS Safety Report 5093805-8 (Version None)
Quarter: 2006Q3

REPORT INFORMATION
  Report Type: 
  Country: None (occurrence: None)
  Receive Date: 20060829
  Receipt Date: 20060829
  Transmission Date: 20061208
  Serious: Yes (Other)
  Sender: FDA-Public Use
  Company Number: None

PATIENT
  Age: 63 Year
  Sex: Male
  Weight: 69.9 kg

DRUGS (11)
  1. TERAZOSIN HCL [Suspect]
  2. EZETIMIBE [Concomitant]
  3. ALBUTEROL SULFATE AND IPRATROPIUM BROMIDE [Concomitant]
  4. ATORVASTATIN CALCIUM [Concomitant]
  5. MOMETASONE FUROATE [Concomitant]
  6. LISINOPRIL [Concomitant]
  7. METOPROLOL TARTRATE [Concomitant]
  8. CLOPIDOGREL BISULFATE [Concomitant]
  9. FUROSEMIDE [Concomitant]
  10. TAMSULOSIN HCL [Concomitant]
  11. OMEPRAZOLE [Concomitant]

REACTIONS (2)
  - BLOOD PRESSURE ORTHOSTATIC DECREASED [None]
  - DIZZINESS [None]
